FAERS Safety Report 5276498-6 (Version None)
Quarter: 2007Q1

REPORT INFORMATION
  Report Type: 
  Country: None (occurrence: None)
  Receive Date: 20061214
  Receipt Date: 20061110
  Transmission Date: 20070707
  Serious: Yes (Other)
  Sender: FDA-Public Use
  Company Number: 2006113788

PATIENT
  Age: 55 Year
  Sex: Female

DRUGS (2)
  1. ERAXIS [Suspect]
     Indication: ASPERGILLOSIS
     Dosage: 200 MG/KG (EVERY DAY), INTRAVENOUS 100 MG (EVERYDAY), INTRAVENOUS
     Route: 042
     Dates: start: 20060101
  2. ROCEPHIN [Concomitant]

REACTIONS (1)
  - LIVER FUNCTION TEST ABNORMAL [None]
